FAERS Safety Report 6711242-4 (Version None)
Quarter: 2010Q2

REPORT INFORMATION
  Report Type: 
  Country: None (occurrence: None)
  Receive Date: 20100505
  Receipt Date: 20100429
  Transmission Date: 20101027
  Serious: Yes (Other)
  Sender: FDA-Public Use
  Company Number: IT-BAYER-201020787GPV

PATIENT
  Age: 63 Year
  Sex: Male

DRUGS (3)
  1. CIPROXIN [Suspect]
     Indication: INFECTION
     Route: 048
     Dates: start: 20100310, end: 20100321
  2. COUMADIN [Suspect]
     Indication: DEEP VEIN THROMBOSIS
     Dosage: 37.5 G WEEKLY
     Route: 048
     Dates: start: 20090720, end: 20100330
  3. IBRUPROFEN [Concomitant]
     Indication: DRUG USE FOR UNKNOWN INDICATION
     Route: 048

REACTIONS (1)
  - MUCOSAL HAEMORRHAGE [None]
